FAERS Safety Report 9240326 (Version 1)
Quarter: 2013Q2

REPORT INFORMATION
  Report Type: Spontaneous
  Country: US (occurrence: None)
  Receive Date: 20130418
  Receipt Date: 20130418
  Transmission Date: 20140414
  Serious: Yes (Hospitalization)
  Sender: FDA-Public Use
  Company Number: None

PATIENT
  Age: 32 Year
  Sex: Male
  Weight: 65.1 kg

DRUGS (21)
  1. GM-CSF [Suspect]
     Indication: ACUTE MYELOID LEUKAEMIA
     Dosage: SINGLE IV INFUSION
     Route: 042
     Dates: start: 20130103
  2. PLERIXAFOR [Suspect]
  3. ACTIGAIL [Concomitant]
  4. ACYCLOVIR [Concomitant]
  5. ALLOPURINOL [Concomitant]
  6. ATIVAN [Concomitant]
  7. BACLOFEN [Concomitant]
  8. ENTECAVIR [Concomitant]
  9. BENADRYL [Concomitant]
  10. CELEXA [Concomitant]
  11. CIPROFLOXACIN [Concomitant]
  12. COLACE [Concomitant]
  13. DAPSONE [Concomitant]
  14. DILAUDID [Concomitant]
  15. NEXIUM [Concomitant]
  16. GABAPENTIN [Concomitant]
  17. MEGACE [Concomitant]
  18. MIRALAX [Concomitant]
  19. MS CONTIN [Concomitant]
  20. POSACONAZOLE [Concomitant]
  21. PROCHLORPERAZINE [Concomitant]

REACTIONS (5)
  - Abdominal pain [None]
  - Diverticulitis [None]
  - Appendicitis [None]
  - Intestinal ischaemia [None]
  - Infarction [None]
